FAERS Safety Report 24355817 (Version 1)
Quarter: 2024Q3

REPORT INFORMATION
  Report Type: Report from Study
  Country: US (occurrence: US)
  Receive Date: 20240924
  Receipt Date: 20240924
  Transmission Date: 20241017
  Serious: Yes (Other)
  Sender: PROCTER AND GAMBLE
  Company Number: US-PROCTER+GAMBLE-PH24007070

PATIENT
  Age: 83 Year
  Sex: Female

DRUGS (3)
  1. DIPHENHYDRAMINE HYDROCHLORIDE [Suspect]
     Active Substance: DIPHENHYDRAMINE HYDROCHLORIDE
     Indication: Infusion related reaction
     Dosage: UNK
     Dates: start: 2022
  2. Cytotoxic T lymphocytes [Concomitant]
     Dosage: A*02:01 (1 ? 106/KG)
     Route: 042
  3. ACETAMINOPHEN [Concomitant]
     Active Substance: ACETAMINOPHEN
     Indication: Infusion related reaction
     Dosage: UNK

REACTIONS (3)
  - Hypoxia [Recovered/Resolved]
  - Oxygen saturation decreased [Recovered/Resolved]
  - Off label use [Unknown]

NARRATIVE: CASE EVENT DATE: 20220101
